FAERS Safety Report 20034608 (Version 1)
Quarter: 2021Q4

REPORT INFORMATION
  Report Type: Spontaneous
  Country: US (occurrence: None)
  Receive Date: 20211104
  Receipt Date: 20211104
  Transmission Date: 20220303
  Serious: No
  Sender: FDA-Public Use
  Company Number: 2021A762367

PATIENT
  Age: 75 Year
  Sex: Female
  Weight: 79.8 kg

DRUGS (1)
  1. FARXIGA [Suspect]
     Active Substance: DAPAGLIFLOZIN PROPANEDIOL
     Indication: Peripheral swelling
     Route: 048
     Dates: start: 2020

REACTIONS (5)
  - Peripheral swelling [Unknown]
  - Fall [Unknown]
  - Contusion [Unknown]
  - Pain in extremity [Unknown]
  - Product use in unapproved indication [Unknown]

NARRATIVE: CASE EVENT DATE: 20200101
